FAERS Safety Report 6761711-6 (Version None)
Quarter: 2010Q2

REPORT INFORMATION
  Report Type: 
  Country: None (occurrence: None)
  Receive Date: 20100609
  Receipt Date: 20100607
  Transmission Date: 20101027
  Serious: Yes (Death)
  Sender: FDA-Public Use
  Company Number: US-BAYER-201024602NA

PATIENT
  Age: 45 Year

DRUGS (4)
  1. CAMPATH [Suspect]
     Indication: ACUTE MYELOID LEUKAEMIA
     Dosage: TOTAL DAILY DOSE: 20 MG
  2. CLOFARABINE [Suspect]
     Indication: ACUTE MYELOID LEUKAEMIA
     Route: 042
  3. MELPHALAN [Suspect]
     Indication: ACUTE MYELOID LEUKAEMIA
  4. TACROLIMUS [Concomitant]

REACTIONS (1)
  - RENAL FAILURE [None]
